FAERS Safety Report 10425075 (Version 2)
Quarter: 2015Q1

REPORT INFORMATION
  Report Type: Spontaneous
  Country: US (occurrence: US)
  Receive Date: 20140902
  Receipt Date: 20150123
  Transmission Date: 20150720
  Serious: Yes (Hospitalization, Other)
  Sender: FDA-Public Use
  Company Number: US-GLAXOSMITHKLINE-A1087166A

PATIENT
  Sex: Female

DRUGS (1)
  1. RYTHMOL [Suspect]
     Active Substance: PROPAFENONE HYDROCHLORIDE
     Indication: ATRIAL FIBRILLATION
     Dosage: 225 MG TABLET AT UNKNOWN DOSING
     Route: 065
     Dates: start: 2011

REACTIONS (2)
  - Wound [Unknown]
  - Breast cancer [Unknown]

NARRATIVE: CASE EVENT DATE: 2012
